FAERS Safety Report 20345379 (Version 1)
Quarter: 2022Q1

REPORT INFORMATION
  Report Type: Spontaneous
  Country: US (occurrence: US)
  Receive Date: 20220118
  Receipt Date: 20220118
  Transmission Date: 20220423
  Serious: Yes (Other)
  Sender: FDA-Public Use
  Company Number: US-Vifor (International) Inc.-VIT-2022-00271

PATIENT
  Age: 67 Year
  Sex: Male

DRUGS (2)
  1. MIRCERA [Suspect]
     Active Substance: METHOXY POLYETHYLENE GLYCOL-EPOETIN BETA
     Indication: Product used for unknown indication
  2. MIRCERA [Suspect]
     Active Substance: METHOXY POLYETHYLENE GLYCOL-EPOETIN BETA
     Dosage: DOSE NUMBER:2, DOSE CATEGORY: 2
     Dates: start: 20211130

REACTIONS (3)
  - Drug hypersensitivity [Recovered/Resolved]
  - Palpitations [Recovered/Resolved]
  - Arrhythmia [Recovered/Resolved]

NARRATIVE: CASE EVENT DATE: 20211130
